FAERS Safety Report 4361320-2 (Version None)
Quarter: 2004Q2

REPORT INFORMATION
  Report Type: 
  Country: None (occurrence: None)
  Receive Date: 20040520
  Receipt Date: 20040517
  Transmission Date: 20050107
  Serious: Yes (Hospitalization)
  Sender: FDA-Public Use
  Company Number: DE-MERCK-0405DEU00119

PATIENT
  Age: 29 Year
  Sex: Female

DRUGS (1)
  1. MAXALT [Suspect]
     Indication: MIGRAINE
     Route: 048
     Dates: start: 20010608

REACTIONS (1)
  - COMA HEPATIC [None]
